FAERS Safety Report 11981387 (Version 1)
Quarter: 2016Q1

REPORT INFORMATION
  Report Type: Spontaneous
  Country: PK (occurrence: PK)
  Receive Date: 20160130
  Receipt Date: 20160130
  Transmission Date: 20160526
  Serious: Yes (Death, Other)
  Sender: FDA-Public Use
  Company Number: PK-CIPLA LTD.-2016PK00310

PATIENT

DRUGS (1)
  1. GEMCITABINE [Suspect]
     Active Substance: GEMCITABINE\GEMCITABINE HYDROCHLORIDE
     Indication: SQUAMOUS CELL CARCINOMA OF HEAD AND NECK
     Dosage: 150 MG/M2, OR A TOTAL DOSE NOTEXCEEDING 200 MG, INFUSION
     Route: 042

REACTIONS (2)
  - Pharyngeal fistula [Unknown]
  - Haemorrhage [Fatal]
